FAERS Safety Report 13870031 (Version 1)
Quarter: 2017Q3

REPORT INFORMATION
  Report Type: Report from Study
  Country: US (occurrence: US)
  Receive Date: 20170815
  Receipt Date: 20170815
  Transmission Date: 20171127
  Serious: No
  Sender: FDA-Public Use
  Company Number: US-AMGEN-USASL2017121148

PATIENT
  Age: 61 Year
  Sex: Female

DRUGS (2)
  1. ENBREL [Suspect]
     Active Substance: ETANERCEPT
     Indication: RHEUMATOID ARTHRITIS
     Dosage: 50 MG, QWK
     Route: 065
     Dates: start: 201707
  2. MTX [Concomitant]
     Active Substance: METHOTREXATE SODIUM
     Dosage: UNK

REACTIONS (12)
  - Nausea [Unknown]
  - Headache [Unknown]
  - Weight decreased [Unknown]
  - Feeling abnormal [Unknown]
  - Injection site discolouration [Unknown]
  - Fatigue [Unknown]
  - Diarrhoea [Unknown]
  - Tremor [Unknown]
  - Flatulence [Unknown]
  - Decreased appetite [Unknown]
  - Pain [Unknown]
  - Nervousness [Unknown]

NARRATIVE: CASE EVENT DATE: 2017
